FAERS Safety Report 24167649 (Version 2)
Quarter: 2024Q3

REPORT INFORMATION
  Report Type: Spontaneous
  Country: US (occurrence: US)
  Receive Date: 20240802
  Receipt Date: 20240823
  Transmission Date: 20241016
  Serious: No
  Sender: BIOVITRUM
  Company Number: US-BIOVITRUM-2024-US-010516

PATIENT
  Age: 12 Month
  Sex: Female

DRUGS (1)
  1. SYNAGIS [Suspect]
     Active Substance: PALIVIZUMAB
     Indication: Antiviral prophylaxis
     Dosage: 15MG/KG INTRAMUSCULARLY ONE TIME PER 28-30 DAYS
     Route: 030

REACTIONS (3)
  - Illness [Unknown]
  - COVID-19 [Unknown]
  - Product dose omission issue [Unknown]
